FAERS Safety Report 5355460-9 (Version None)
Quarter: 2007Q2

REPORT INFORMATION
  Report Type: 
  Country: None (occurrence: None)
  Receive Date: 20070530
  Receipt Date: 20061204
  Transmission Date: 20071010
  Serious: Yes (Hospitalization)
  Sender: FDA-Public Use
  Company Number: US200609002059

PATIENT
  Age: 49 Year
  Sex: Female
  Weight: 88.4 kg

DRUGS (4)
  1. ZYPREXA [Suspect]
     Dosage: SEE IMAGE
     Dates: start: 20020101
  2. TEGRETOL [Concomitant]
  3. PAXIL [Concomitant]
  4. ZOLOFT [Concomitant]

REACTIONS (1)
  - DIABETES MELLITUS [None]
